FAERS Safety Report 25087798 (Version 2)
Quarter: 2025Q1

REPORT INFORMATION
  Report Type: Spontaneous
  Country: US (occurrence: US)
  Receive Date: 20250318
  Receipt Date: 20250328
  Transmission Date: 20250408
  Serious: Yes (Other)
  Sender: GILEAD
  Company Number: US-GILEAD-2025-0707398

PATIENT
  Age: 28 Year
  Sex: Female
  Weight: 131.5 kg

DRUGS (1)
  1. BIKTARVY [Suspect]
     Active Substance: BICTEGRAVIR SODIUM\EMTRICITABINE\TENOFOVIR ALAFENAMIDE FUMARATE
     Indication: HIV infection
     Route: 065
     Dates: start: 20240229, end: 20250311

REACTIONS (3)
  - Renal impairment [Unknown]
  - Glomerular filtration rate decreased [Not Recovered/Not Resolved]
  - CD4 lymphocytes decreased [Unknown]
